FAERS Safety Report 8729806 (Version 2)
Quarter: 2012Q4

REPORT INFORMATION
  Report Type: 
  Country: FR (occurrence: FR)
  Receive Date: 20120817
  Receipt Date: 20120910
  Transmission Date: 20130627
  Serious: No
  Sender: FDA-Public Use
  Company Number: FR-JNJFOC-20120801402

PATIENT
  Age: 50 None
  Sex: Female
  Weight: 60 kg

DRUGS (9)
  1. DUROGESIC [Suspect]
     Indication: PAIN
     Route: 062
  2. MOPRAL [Concomitant]
     Indication: GASTROOESOPHAGEAL REFLUX DISEASE
     Route: 048
  3. EFFERALGAN [Concomitant]
     Indication: PAIN
     Route: 048
  4. DESLORATADINE [Concomitant]
     Indication: HYPERSENSITIVITY
     Route: 048
  5. SEROPLEX [Concomitant]
     Indication: DEPRESSION
     Route: 048
  6. MOTILIUM [Concomitant]
     Indication: GASTROOESOPHAGEAL REFLUX DISEASE
     Route: 048
  7. LEXOMIL [Concomitant]
     Indication: ANXIETY
     Route: 048
  8. ZOPICLONE [Concomitant]
     Indication: INSOMNIA
     Route: 048
  9. MOVICOL [Concomitant]
     Indication: CONSTIPATION
     Route: 048

REACTIONS (4)
  - Product quality issue [Unknown]
  - Pain [Unknown]
  - Drug dose omission [Unknown]
  - Wrong technique in drug usage process [Unknown]
